FAERS Safety Report 7626324-2 (Version None)
Quarter: 2011Q3

REPORT INFORMATION
  Report Type: 
  Country: None (occurrence: None)
  Receive Date: 20110721
  Receipt Date: 20110708
  Transmission Date: 20111222
  Serious: Yes (Hospitalization)
  Sender: FDA-Public Use
  Company Number: KR-AMGEN-KORSP2011035735

PATIENT
  Age: 51 Year
  Sex: Male

DRUGS (1)
  1. CINACALCET HYDROCHLORIDE [Suspect]
     Indication: SECONDARY HYPERTHYROIDISM
     Dosage: 25 MG, UNK
     Route: 048
     Dates: start: 20110125

REACTIONS (1)
  - OEDEMA [None]
